FAERS Safety Report 25709445 (Version 1)
Quarter: 2025Q3

REPORT INFORMATION
  Report Type: Spontaneous
  Country: US (occurrence: US)
  Receive Date: 20250821
  Receipt Date: 20250821
  Transmission Date: 20251021
  Serious: No
  Sender: ABBVIE
  Company Number: US-ABBVIE-6418268

PATIENT
  Age: 53 Year
  Sex: Female

DRUGS (1)
  1. QULIPTA [Suspect]
     Active Substance: ATOGEPANT
     Indication: Migraine
     Dosage: 60 MG, CUT  PILLS INTO 1/4
     Route: 048

REACTIONS (3)
  - Illness [Unknown]
  - Weight decreased [Unknown]
  - Wrong technique in product usage process [Unknown]
